FAERS Safety Report 5640735-6 (Version None)
Quarter: 2008Q1

REPORT INFORMATION
  Report Type: 
  Country: None (occurrence: None)
  Receive Date: 20080227
  Receipt Date: 20060504
  Transmission Date: 20080703
  Serious: Yes (Hospitalization, Other)
  Sender: FDA-Public Use
  Company Number: KR-JNJFOC-20051000890

PATIENT
  Sex: Male
  Weight: 64.7 kg

DRUGS (9)
  1. PLACEBO [Suspect]
     Route: 042
  2. PLACEBO [Suspect]
     Indication: RHEUMATOID ARTHRITIS
     Route: 042
  3. TYROPA [Concomitant]
     Indication: ABDOMINAL PAIN UPPER
  4. PANTOPRAZOLE SODIUM [Concomitant]
     Indication: GASTROINTESTINAL DISORDER
     Route: 048
  5. ANASPAZ [Concomitant]
     Indication: GASTROINTESTINAL DISORDER
  6. METHOTREXATE [Suspect]
     Indication: RHEUMATOID ARTHRITIS
     Route: 048
  7. FOLIN [Concomitant]
     Indication: RHEUMATOID ARTHRITIS
     Route: 048
  8. MUCOSTA [Concomitant]
     Indication: GASTROINTESTINAL DISORDER
  9. TYLENOL (CAPLET) [Concomitant]
     Indication: RHEUMATOID ARTHRITIS

REACTIONS (1)
  - GASTRIC CANCER [None]
